FAERS Safety Report 5724502-0 (Version None)
Quarter: 2008Q2

REPORT INFORMATION
  Report Type: 
  Country: None (occurrence: None)
  Receive Date: 20080429
  Receipt Date: 20080418
  Transmission Date: 20081010
  Serious: Yes (Disabling)
  Sender: FDA-Public Use
  Company Number: GXKR2008GB03775

PATIENT
  Age: 64 Year
  Sex: Male
  Weight: 79.4 kg

DRUGS (2)
  1. SIMVASTATIN [Suspect]
     Indication: BLOOD CHOLESTEROL INCREASED
     Dosage: 10 MG, ORAL
     Route: 048
     Dates: start: 20080130, end: 20080203
  2. ATENOLOL [Concomitant]

REACTIONS (1)
  - PALPITATIONS [None]
